FAERS Safety Report 6199041-6 (Version None)
Quarter: 2009Q2

REPORT INFORMATION
  Report Type: 
  Country: None (occurrence: None)
  Receive Date: 20090520
  Receipt Date: 20090520
  Transmission Date: 20091009
  Serious: Yes (Other)
  Sender: FDA-Public Use
  Company Number: None

PATIENT
  Sex: Female
  Weight: 38.5557 kg

DRUGS (1)
  1. OXYBUTYNIN 5MG TAB [Suspect]
     Indication: INCONTINENCE
     Dosage: 1 PER DAY
     Dates: start: 20090101, end: 20090503

REACTIONS (4)
  - DECREASED ACTIVITY [None]
  - MEMORY IMPAIRMENT [None]
  - PRODUCT SUBSTITUTION ISSUE [None]
  - UNEVALUABLE EVENT [None]
